FAERS Safety Report 20702803 (Version 1)
Quarter: 2022Q2

REPORT INFORMATION
  Report Type: Report from Study
  Country: CO (occurrence: CO)
  Receive Date: 20220412
  Receipt Date: 20220412
  Transmission Date: 20220721
  Serious: Yes (Other)
  Sender: FDA-Public Use
  Company Number: CO-ABBVIE-22K-036-4246429-00

PATIENT
  Sex: Female
  Weight: 65 kg

DRUGS (11)
  1. HUMIRA [Suspect]
     Active Substance: ADALIMUMAB
     Indication: Rheumatoid arthritis
     Route: 058
     Dates: start: 20210916, end: 20220106
  2. HUMIRA [Suspect]
     Active Substance: ADALIMUMAB
     Route: 058
     Dates: start: 202201
  3. SULFASALAZINE [Concomitant]
     Active Substance: SULFASALAZINE
     Indication: Rheumatoid arthritis
     Route: 048
  4. SULFASALAZINE [Concomitant]
     Active Substance: SULFASALAZINE
     Route: 048
  5. LEFLUNOMIDE [Concomitant]
     Active Substance: LEFLUNOMIDE
     Indication: Myalgia
     Route: 048
  6. OMEPRAZOLE [Concomitant]
     Active Substance: OMEPRAZOLE
     Indication: Gastrointestinal disorder
  7. VITAMIN D [Concomitant]
     Active Substance: VITAMIN D NOS
     Indication: Arthralgia
  8. VITAMIN D [Concomitant]
     Active Substance: VITAMIN D NOS
     Indication: Arthritis
  9. PREDNISOLONE [Concomitant]
     Active Substance: PREDNISOLONE
     Indication: Arthralgia
  10. PREDNISOLONE [Concomitant]
     Active Substance: PREDNISOLONE
  11. PREDNISOLONE [Concomitant]
     Active Substance: PREDNISOLONE

REACTIONS (7)
  - Choking [Unknown]
  - Malaise [Not Recovered/Not Resolved]
  - Dysphonia [Recovered/Resolved]
  - Influenza [Recovered/Resolved]
  - Diarrhoea [Not Recovered/Not Resolved]
  - Oropharyngeal pain [Recovered/Resolved]
  - Chest pain [Unknown]

NARRATIVE: CASE EVENT DATE: 20210101
